FAERS Safety Report 12805420 (Version 1)
Quarter: 2016Q4

REPORT INFORMATION
  Report Type: Spontaneous
  Country: JP (occurrence: JP)
  Receive Date: 20161004
  Receipt Date: 20161004
  Transmission Date: 20170207
  Serious: Yes (Other)
  Sender: FDA-Public Use
  Company Number: JP-BAUSCH-BL-2016-024161

PATIENT
  Age: 54 Year
  Sex: Female

DRUGS (3)
  1. METOCLOPRAMIDE. [Suspect]
     Active Substance: METOCLOPRAMIDE
     Indication: GASTRIC DISORDER
     Route: 065
     Dates: start: 201305
  2. PAROXETINE. [Suspect]
     Active Substance: PAROXETINE
     Indication: MAJOR DEPRESSION
     Route: 065
  3. METOCLOPRAMIDE. [Interacting]
     Active Substance: METOCLOPRAMIDE
     Route: 042
     Dates: start: 20130604

REACTIONS (9)
  - Condition aggravated [Unknown]
  - Hyperhidrosis [Recovered/Resolved]
  - Hyperprolactinaemia [Recovered/Resolved]
  - Depressed mood [Unknown]
  - Drug interaction [Recovered/Resolved]
  - Extrapyramidal disorder [Recovered/Resolved]
  - Psychomotor retardation [Unknown]
  - Flushing [Recovered/Resolved]
  - Drug ineffective [Unknown]

NARRATIVE: CASE EVENT DATE: 2013
